FAERS Safety Report 23798230 (Version 4)
Quarter: 2024Q3

REPORT INFORMATION
  Report Type: Spontaneous
  Country: HU (occurrence: HU)
  Receive Date: 20240430
  Receipt Date: 20240813
  Transmission Date: 20241017
  Serious: Yes (Other)
  Sender: RECORDATI
  Company Number: HU-RECORDATI RARE DISEASE INC.-2024002945

PATIENT

DRUGS (9)
  1. ISTURISA [Suspect]
     Active Substance: OSILODROSTAT PHOSPHATE
     Indication: Pituitary-dependent Cushing^s syndrome
     Dosage: 2 MG, BID
     Dates: start: 20240219
  2. ISTURISA [Suspect]
     Active Substance: OSILODROSTAT PHOSPHATE
     Indication: Hyperadrenocorticism
  3. COVEREX AS KOMB [Concomitant]
     Indication: Hypertension
     Dosage: 5/1.25 MG REGGEL 1 TBL
     Dates: start: 2022
  4. NEBIVOLOL HYDROCHLORIDE [Concomitant]
     Active Substance: NEBIVOLOL HYDROCHLORIDE
     Indication: Hypertension
     Dosage: (AT BREAKFAST) 2.5 MG
     Dates: start: 2022
  5. SPIRONOLACTONE [Concomitant]
     Active Substance: SPIRONOLACTONE
     Indication: Hypertension
     Dosage: 25 MG, BID
     Dates: start: 2022
  6. SPIRONOLACTONE [Concomitant]
     Active Substance: SPIRONOLACTONE
     Indication: Oedema
  7. EUTHYROX [Concomitant]
     Active Substance: LEVOTHYROXINE SODIUM
     Indication: Hypothyroidism
     Dosage: (AT BREAKFAST) 50 MICROG
     Dates: start: 2022
  8. D3 VITAMIN [Concomitant]
     Indication: Osteoporosis
     Dosage: 3000 NEDAILY
     Dates: start: 2022
  9. ALLOPURINOL [Concomitant]
     Active Substance: ALLOPURINOL
     Indication: Hyperuricaemia
     Dosage: 100 MG DAILY
     Dates: start: 2022

REACTIONS (2)
  - Adrenal haemorrhage [Recovering/Resolving]
  - Disease progression [Recovered/Resolved]

NARRATIVE: CASE EVENT DATE: 20240320
